FAERS Safety Report 7119514-9 (Version None)
Quarter: 2010Q4

REPORT INFORMATION
  Report Type: 
  Country: None (occurrence: None)
  Receive Date: 20101123
  Receipt Date: 20101118
  Transmission Date: 20110411
  Serious: Yes (Death, Hospitalization, Other)
  Sender: FDA-Public Use
  Company Number: US-CEPHALON-2010005879

PATIENT
  Sex: Female

DRUGS (2)
  1. NUVIGIL [Suspect]
     Indication: HYPERSOMNIA
     Route: 048
     Dates: start: 20090901
  2. NUVIGIL [Suspect]
     Indication: SOMNOLENCE

REACTIONS (3)
  - OVARIAN CANCER [None]
  - ROAD TRAFFIC ACCIDENT [None]
  - UTERINE CANCER [None]
